FAERS Safety Report 15717231 (Version 1)
Quarter: 2018Q4

REPORT INFORMATION
  Report Type: Spontaneous
  Country: US (occurrence: US)
  Receive Date: 20181213
  Receipt Date: 20181213
  Transmission Date: 20190205
  Serious: Yes (Life-Threatening, Other)
  Sender: FDA-Public Use
  Company Number: None

PATIENT
  Age: 68 Year
  Sex: Female
  Weight: 69.75 kg

DRUGS (1)
  1. LEXISCAN [Suspect]
     Active Substance: REGADENOSON
     Indication: CARDIAC STRESS TEST
     Dosage: ?          OTHER FREQUENCY:ONCE, NUCLEAR TEST;?
     Route: 042
     Dates: start: 20151226, end: 20151226

REACTIONS (9)
  - Loss of consciousness [None]
  - Chest pain [None]
  - Presyncope [None]
  - Vomiting [None]
  - Fatigue [None]
  - Pain in extremity [None]
  - Cardiac arrest [None]
  - Nausea [None]
  - Asthenia [None]

NARRATIVE: CASE EVENT DATE: 20151226
